FAERS Safety Report 24439474 (Version 1)
Quarter: 2024Q4

REPORT INFORMATION
  Report Type: Report from Study
  Country: US (occurrence: US)
  Receive Date: 20241015
  Receipt Date: 20241015
  Transmission Date: 20250115
  Serious: Yes (Other)
  Sender: ABBVIE
  Company Number: US-ABBVIE-5506980

PATIENT
  Age: 75 Year
  Sex: Male
  Weight: 83 kg

DRUGS (1)
  1. LUPRON [Suspect]
     Active Substance: LEUPROLIDE ACETATE
     Indication: Product used for unknown indication
     Route: 065
     Dates: start: 20221101

REACTIONS (8)
  - Cataract [Unknown]
  - Hot flush [Recovered/Resolved]
  - Atrial fibrillation [Recovered/Resolved]
  - Thyroid disorder [Not Recovered/Not Resolved]
  - Atrial fibrillation [Not Recovered/Not Resolved]
  - Hot flush [Not Recovered/Not Resolved]
  - Blood test abnormal [Recovered/Resolved]
  - Blood test abnormal [Not Recovered/Not Resolved]

NARRATIVE: CASE EVENT DATE: 20221101
